FAERS Safety Report 4636561-7 (Version None)
Quarter: 2005Q2

REPORT INFORMATION
  Report Type: 
  Country: None (occurrence: None)
  Receive Date: 20050414
  Receipt Date: 20050329
  Transmission Date: 20051028
  Serious: Yes (Life-Threatening)
  Sender: FDA-Public Use
  Company Number: 2005-FF-00223FF

PATIENT
  Age: 45 Year
  Sex: Male

DRUGS (4)
  1. MOBIC [Suspect]
     Dosage: 15 MG (15 MG)
     Route: 048
     Dates: start: 20050220, end: 20050228
  2. PREDNISOLONE [Concomitant]
  3. DI DOLKO (APOREX) [Concomitant]
  4. TETRAZEPAM (TETRAZEPAM) [Concomitant]

REACTIONS (3)
  - EXTRAVASATION BLOOD [None]
  - GASTRIC ULCER PERFORATION [None]
  - PNEUMOPERITONEUM [None]
